FAERS Safety Report 9192064 (Version 1)
Quarter: 2013Q1

REPORT INFORMATION
  Report Type: Spontaneous
  Country: US (occurrence: None)
  Receive Date: 20130325
  Receipt Date: 20130325
  Transmission Date: 20140127
  Serious: Yes (Death)
  Sender: FDA-Public Use
  Company Number: IPC201303-000090

PATIENT
  Sex: Male

DRUGS (5)
  1. METOPROLOL TARTRATE [Suspect]
  2. AMLODIPINE BESILATE [Suspect]
  3. METFORMIN HYDROCHLORIDE [Suspect]
  4. DIPHENHYDRAMINE [Suspect]
  5. ACETAMINOPHEN [Suspect]

REACTIONS (1)
  - Intentional overdose [None]
